FAERS Safety Report 5157572-1 (Version None)
Quarter: 2006Q4

REPORT INFORMATION
  Report Type: 
  Country: None (occurrence: None)
  Receive Date: 20061127
  Receipt Date: 20061123
  Transmission Date: 20070319
  Serious: Yes (Other)
  Sender: FDA-Public Use
  Company Number: NL-GLAXOSMITHKLINE-B0448041A

PATIENT
  Sex: Female

DRUGS (1)
  1. PAROXETINE HCL [Suspect]
     Route: 065

REACTIONS (5)
  - ANXIETY [None]
  - HALLUCINATION [None]
  - ILL-DEFINED DISORDER [None]
  - NEGATIVE THOUGHTS [None]
  - SUICIDAL IDEATION [None]
